FAERS Safety Report 6493527-2 (Version None)
Quarter: 2009Q4

REPORT INFORMATION
  Report Type: 
  Country: None (occurrence: None)
  Receive Date: 20091209
  Receipt Date: 20091126
  Transmission Date: 20100525
  Serious: Yes (Hospitalization)
  Sender: FDA-Public Use
  Company Number: ADR52522009

PATIENT
  Age: 42 Year
  Sex: Female

DRUGS (7)
  1. METFORMIN HCL [Suspect]
     Dosage: 500 MG
  2. ACETAMINOPHEN WITH PROPOXYPHENE HCL TAB [Concomitant]
  3. DICLOFENAC SODIUM [Concomitant]
  4. NORTRIPTYLINE [Concomitant]
  5. RIZATRIPTAN BENZOATE [Concomitant]
  6. RIZATRIPTAN BENZOATE [Concomitant]
  7. TEMAZEPAM [Concomitant]

REACTIONS (10)
  - COLON CANCER [None]
  - DUODENAL ULCER [None]
  - GASTRITIS [None]
  - GASTROINTESTINAL DISORDER [None]
  - HEPATIC STEATOSIS [None]
  - INFLAMMATORY BOWEL DISEASE [None]
  - OESOPHAGITIS ULCERATIVE [None]
  - PALLOR [None]
  - REFLUX OESOPHAGITIS [None]
  - VOMITING [None]
